FAERS Safety Report 9165317 (Version 1)
Quarter: 2013Q1

REPORT INFORMATION
  Report Type: Spontaneous
  Country: US (occurrence: None)
  Receive Date: 20130314
  Receipt Date: 20130314
  Transmission Date: 20140127
  Serious: Yes (Life-Threatening, Hospitalization)
  Sender: FDA-Public Use
  Company Number: None

PATIENT
  Age: 24 Year
  Sex: Male

DRUGS (9)
  1. EFAVIRENZ (+) EMTRICITABINE (+) TENOFOVIR DISOPROXIL FUMARATE [Suspect]
     Indication: HIV INFECTION
     Route: 048
     Dates: start: 20111201, end: 20121122
  2. VITAMIN D [Suspect]
     Indication: SUPPLEMENTATION THERAPY
     Route: 048
     Dates: start: 20111201, end: 20121122
  3. PLACEBO [Suspect]
  4. CALCIUM CARBONATE [Suspect]
     Indication: SUPPLEMENTATION THERAPY
     Route: 048
     Dates: start: 20111201, end: 20121122
  5. PLACEBO [Suspect]
  6. INFLUENZA VACCINE [Concomitant]
  7. ZYRTEC [Concomitant]
  8. SYNALAR (FLUOCINOLONE ACETONIDE) [Concomitant]
  9. VITACRAVES (MULTIVITAMINE) [Concomitant]

REACTIONS (5)
  - Hepatic failure [None]
  - Drug-induced liver injury [None]
  - Liver transplant [None]
  - Jaundice cholestatic [None]
  - Coagulopathy [None]
